FAERS Safety Report 8825175 (Version 4)
Quarter: 2013Q1

REPORT INFORMATION
  Report Type: Spontaneous
  Country: US (occurrence: US)
  Receive Date: 20121004
  Receipt Date: 20130213
  Transmission Date: 20140127
  Serious: Yes (Death, Hospitalization)
  Sender: FDA-Public Use
  Company Number: US-GLAXOSMITHKLINE-A0996129A

PATIENT
  Age: 64 Year
  Sex: Female

DRUGS (5)
  1. FLOLAN [Suspect]
     Indication: PULMONARY HYPERTENSION
     Dosage: 18.75NGKM CONTINUOUS
     Route: 042
     Dates: start: 20100701
  2. VELETRI [Suspect]
     Indication: PULMONARY HYPERTENSION
     Route: 042
  3. OXYGEN [Concomitant]
     Dosage: 3L CONTINUOUS
     Route: 055
  4. LASIX [Concomitant]
  5. REVATIO [Concomitant]

REACTIONS (14)
  - Pneumonia [Unknown]
  - Clostridium difficile infection [Unknown]
  - Fungal infection [Unknown]
  - Dyspnoea [Unknown]
  - Infection [Unknown]
  - Renal failure [Fatal]
  - Oedema peripheral [Unknown]
  - Hypotension [Unknown]
  - Orthopnoea [Unknown]
  - Fluid overload [Unknown]
  - Dehydration [Unknown]
  - Pulmonary hypertension [Unknown]
  - Right ventricular failure [Unknown]
  - Multi-organ failure [Unknown]
